FAERS Safety Report 8214531-X (Version None)
Quarter: 2012Q1

REPORT INFORMATION
  Report Type: 
  Country: None (occurrence: None)
  Receive Date: 20120316
  Receipt Date: 20120307
  Transmission Date: 20120608
  Serious: Yes (Hospitalization)
  Sender: FDA-Public Use
  Company Number: CA-JNJFOC-20120303926

PATIENT
  Sex: Male

DRUGS (6)
  1. CITALOPRAM HYDROBROMIDE [Concomitant]
     Route: 065
  2. ATIVAN [Concomitant]
     Route: 065
  3. REMICADE [Suspect]
     Indication: CROHN'S DISEASE
     Route: 042
     Dates: start: 20040915
  4. PREDNISONE TAB [Concomitant]
     Route: 065
  5. FLUOXETINE HCL [Concomitant]
     Route: 065
  6. ZOPLICONE [Concomitant]
     Route: 065

REACTIONS (1)
  - HERNIA [None]
